FAERS Safety Report 6715880-4 (Version None)
Quarter: 2010Q2

REPORT INFORMATION
  Report Type: 
  Country: None (occurrence: None)
  Receive Date: 20100507
  Receipt Date: 20100426
  Transmission Date: 20101027
  Serious: Yes (Other)
  Sender: FDA-Public Use
  Company Number: PHHY2010CO26941

PATIENT
  Sex: Female

DRUGS (1)
  1. EXJADE [Suspect]
     Dosage: 1 DF, UNK
     Route: 048
     Dates: start: 20090301, end: 20100326

REACTIONS (1)
  - BLOOD LACTATE DEHYDROGENASE INCREASED [None]
